FAERS Safety Report 6981534-2 (Version None)
Quarter: 2010Q3

REPORT INFORMATION
  Report Type: 
  Country: None (occurrence: None)
  Receive Date: 20100914
  Receipt Date: 20100914
  Transmission Date: 20110219
  Serious: Yes (Hospitalization)
  Sender: FDA-Public Use
  Company Number: PHHO2000CZ01735

PATIENT
  Sex: Male
  Weight: 65 kg

DRUGS (2)
  1. CYCLOSPORINE [Suspect]
  2. CERTICAN [Suspect]
     Dosage: 3MG

REACTIONS (1)
  - RENAL IMPAIRMENT [None]
